FAERS Safety Report 8358516-1 (Version None)
Quarter: 2012Q2

REPORT INFORMATION
  Report Type: 
  Country: None (occurrence: None)
  Receive Date: 20120514
  Receipt Date: 20120503
  Transmission Date: 20120825
  Serious: Yes (Hospitalization)
  Sender: FDA-Public Use
  Company Number: US-ACTELION-A-US2011-55558

PATIENT

DRUGS (1)
  1. TRACLEER [Suspect]
     Indication: PULMONARY ARTERIAL HYPERTENSION
     Dosage: UNK
     Route: 048
     Dates: start: 20091110

REACTIONS (10)
  - GALLBLADDER DISORDER [None]
  - DYSPNOEA [None]
  - RENAL FAILURE [None]
  - FATIGUE [None]
  - CHEST PAIN [None]
  - HYPONATRAEMIA [None]
  - NAUSEA [None]
  - FLUID OVERLOAD [None]
  - DYSURIA [None]
  - PRODUCTIVE COUGH [None]
